FAERS Safety Report 23154440 (Version 1)
Quarter: 2023Q4

REPORT INFORMATION
  Report Type: Spontaneous
  Country: JP (occurrence: JP)
  Receive Date: 20231107
  Receipt Date: 20231107
  Transmission Date: 20240110
  Serious: No
  Sender: FDA-Public Use
  Company Number: JP-SCALL-2023-033655

PATIENT
  Sex: Male

DRUGS (3)
  1. DUTASTERIDE [Suspect]
     Active Substance: DUTASTERIDE
     Route: 048
  2. Medication for kidney [Concomitant]
  3. Medication for blood pressure [Concomitant]

REACTIONS (4)
  - Malaise [Unknown]
  - Pruritus [Unknown]
  - Decreased appetite [Unknown]
  - Nausea [Unknown]
